FAERS Safety Report 25719776 (Version 4)
Quarter: 2025Q4

REPORT INFORMATION
  Report Type: Spontaneous
  Country: US (occurrence: US)
  Receive Date: 20250825
  Receipt Date: 20251026
  Transmission Date: 20260117
  Serious: No
  Sender: SANDOZ
  Company Number: US-SANDOZ-SDZ2025US060464

PATIENT
  Sex: Female

DRUGS (1)
  1. ESTRADIOL [Suspect]
     Active Substance: ESTRADIOL
     Indication: Product used for unknown indication
     Dosage: UNK UNK, Q2W
     Route: 065
     Dates: start: 2020

REACTIONS (3)
  - Hot flush [Unknown]
  - Product complaint [Unknown]
  - Device adhesion issue [Unknown]
